FAERS Safety Report 20332180 (Version 2)
Quarter: 2022Q1

REPORT INFORMATION
  Report Type: Spontaneous
  Country: JP (occurrence: JP)
  Receive Date: 20220113
  Receipt Date: 20220127
  Transmission Date: 20220424
  Serious: Yes (Hospitalization, Other)
  Sender: FDA-Public Use
  Company Number: JP-BAYER-2022A003882

PATIENT
  Age: 74 Year
  Sex: Female

DRUGS (3)
  1. ADEMPAS [Suspect]
     Active Substance: RIOCIGUAT
     Indication: Pulmonary hypertension
     Dosage: DAILY DOSE 3 MG
     Route: 048
     Dates: start: 20211228, end: 20211230
  2. ADEMPAS [Suspect]
     Active Substance: RIOCIGUAT
     Indication: Pulmonary hypertension
     Dosage: DAILY DOSE 4.5 MG, TID
     Route: 048
     Dates: start: 20211231, end: 20220101
  3. ADEMPAS [Suspect]
     Active Substance: RIOCIGUAT
     Indication: Pulmonary hypertension
     Dosage: DAILY DOSE 3 MG, TID
     Route: 048
     Dates: start: 20220102

REACTIONS (2)
  - Pulmonary oedema [Recovered/Resolved]
  - Inappropriate schedule of product administration [None]

NARRATIVE: CASE EVENT DATE: 20220101
